FAERS Safety Report 8561784-4 (Version None)
Quarter: 2012Q3

REPORT INFORMATION
  Report Type: 
  Country: None (occurrence: None)
  Receive Date: 20120802
  Receipt Date: 20120726
  Transmission Date: 20120928
  Serious: Yes (Other)
  Sender: FDA-Public Use
  Company Number: ES-009507513-2012SP013859

PATIENT

DRUGS (5)
  1. PEGASYS [Suspect]
     Indication: HEPATITIS C
     Dosage: 180 ?G, QW
     Route: 058
     Dates: start: 20120201, end: 20120307
  2. RIBAVIRIN [Suspect]
     Dosage: 600 MG, QD
     Route: 065
     Dates: start: 20120302, end: 20120307
  3. BOCEPREVIR [Suspect]
     Indication: HEPATITIS C
     Dosage: 2400 MG, QD
     Route: 048
     Dates: start: 20120302, end: 20120307
  4. RIBAVIRIN [Suspect]
     Indication: HEPATITIS C
     Dosage: 1200 MG, QD
     Route: 048
     Dates: start: 20120201
  5. MK-0805 [Concomitant]
     Indication: DIURETIC THERAPY
     Dosage: UPDATE(16APR2012)
     Route: 048
     Dates: start: 20120307, end: 20120411

REACTIONS (4)
  - OEDEMA [None]
  - HYPONATRAEMIA [None]
  - FLUID RETENTION [None]
  - ANAEMIA [None]
